FAERS Safety Report 4837285-3 (Version None)
Quarter: 2005Q4

REPORT INFORMATION
  Report Type: 
  Country: None (occurrence: None)
  Receive Date: 20051122
  Receipt Date: 20051114
  Transmission Date: 20060501
  Serious: Yes (Hospitalization, Other)
  Sender: FDA-Public Use
  Company Number: DEWYE136714NOV05

PATIENT
  Age: 70 Year
  Sex: Female

DRUGS (8)
  1. VENLAFAXINE HCL [Suspect]
     Dosage: SEE IMAGE
     Route: 048
     Dates: start: 20050707, end: 20050711
  2. VENLAFAXINE HCL [Suspect]
     Dosage: SEE IMAGE
     Route: 048
     Dates: start: 20050723, end: 20050724
  3. VENLAFAXINE HCL [Suspect]
     Dosage: SEE IMAGE
     Route: 048
     Dates: start: 20050712, end: 20050726
  4. LERCANIDIPINE [Concomitant]
  5. MULTIBIONTA (ASCORBIC ACID/CALCIUM PANTOTHENATE/CYANOCOBALAMIN/NICOTIN [Concomitant]
  6. MIRTAZAPINE [Concomitant]
  7. AKINETON [Suspect]
     Dosage: SEE IMAGE
     Route: 048
     Dates: start: 20050721, end: 20050722
  8. AKINETON [Suspect]
     Dosage: SEE IMAGE
     Route: 048
     Dates: start: 20050723, end: 20050724

REACTIONS (2)
  - DELIRIUM [None]
  - DRUG INTERACTION [None]
